FAERS Safety Report 17214302 (Version 1)
Quarter: 2020Q1

REPORT INFORMATION
  Report Type: Spontaneous
  Country: US (occurrence: US)
  Receive Date: 20191228
  Receipt Date: 20191228
  Transmission Date: 20200409
  Serious: Yes (Disabling)
  Sender: FDA-Public Use
  Company Number: None

PATIENT
  Age: 10 Year
  Sex: Female
  Weight: 23.4 kg

DRUGS (1)
  1. COLDCALM [Suspect]
     Active Substance: HOMEOPATHICS
     Indication: COUGH
     Dosage: ?          QUANTITY:5 5;?
     Route: 060
     Dates: start: 20191220, end: 20191223

REACTIONS (3)
  - Anxiety [None]
  - Mood altered [None]
  - Product formulation issue [None]

NARRATIVE: CASE EVENT DATE: 20191223
